FAERS Safety Report 8287097-6 (Version None)
Quarter: 2012Q2

REPORT INFORMATION
  Report Type: 
  Country: None (occurrence: None)
  Receive Date: 20120416
  Receipt Date: 20120403
  Transmission Date: 20120825
  Serious: Yes (Life-Threatening)
  Sender: FDA-Public Use
  Company Number: CA-ROCHE-1056026

PATIENT
  Age: 45 Year
  Sex: Male
  Weight: 122 kg

DRUGS (6)
  1. ASPIRIN [Concomitant]
     Route: 048
  2. METOPROLOL TARTRATE [Concomitant]
     Route: 048
  3. ALTEPLASE [Suspect]
     Indication: PRODUCT USED FOR UNKNOWN INDICATION
     Route: 042
  4. DILTIAZEM [Concomitant]
     Route: 048
  5. RANITIDINE [Concomitant]
     Route: 048
  6. SYMBICORT [Concomitant]
     Dosage: SYMBICORT TURBUHALER
     Route: 065

REACTIONS (2)
  - HAEMORRHAGIC STROKE [None]
  - PROCEDURAL COMPLICATION [None]
